FAERS Safety Report 24672971 (Version 1)
Quarter: 2024Q4

REPORT INFORMATION
  Report Type: Spontaneous
  Country: US (occurrence: US)
  Receive Date: 20241128
  Receipt Date: 20241128
  Transmission Date: 20250115
  Serious: Yes (Other)
  Sender: TAKEDA
  Company Number: US-TAKEDA-2024TUS115721

PATIENT
  Age: 75 Year
  Sex: Female

DRUGS (3)
  1. GAMMAGARD LIQUID [Suspect]
     Active Substance: HUMAN IMMUNOGLOBULIN G
     Indication: Guillain-Barre syndrome
     Dosage: UNK
  2. HUMAN IMMUNOGLOBULIN G [Suspect]
     Active Substance: HUMAN IMMUNOGLOBULIN G
     Indication: Product used for unknown indication
     Dosage: UNK
  3. HEPARIN [Concomitant]
     Active Substance: HEPARIN SODIUM
     Indication: Thrombosis
     Dosage: UNK

REACTIONS (15)
  - Thrombosis [Unknown]
  - Arrhythmia [Unknown]
  - Neuromyopathy [Unknown]
  - Pulmonary embolism [Unknown]
  - Sensory disturbance [Unknown]
  - Post procedural complication [Unknown]
  - Hypoaesthesia [Unknown]
  - Feeling abnormal [Unknown]
  - Asthenia [Unknown]
  - Lymphadenopathy [Unknown]
  - Dyspnoea [Unknown]
  - Chest pain [Unknown]
  - Blood pressure increased [Unknown]
  - Paraesthesia [Unknown]
  - Pain in extremity [Unknown]
